FAERS Safety Report 8512434-4 (Version None)
Quarter: 2012Q3

REPORT INFORMATION
  Report Type: 
  Country: None (occurrence: None)
  Receive Date: 20120716
  Receipt Date: 20120709
  Transmission Date: 20120928
  Serious: Yes (Hospitalization)
  Sender: FDA-Public Use
  Company Number: HN-ROCHE-1086335

PATIENT
  Sex: Female

DRUGS (4)
  1. IMURAN [Concomitant]
     Indication: SYSTEMIC LUPUS ERYTHEMATOSUS
  2. CALCIUM [Concomitant]
  3. ASPIRIN [Concomitant]
  4. BONIVA [Suspect]
     Indication: OSTEOPOROSIS
     Route: 048
     Dates: start: 20110114

REACTIONS (2)
  - UTERINE OPERATION [None]
  - CHOLELITHIASIS [None]
